FAERS Safety Report 5239534-9 (Version None)
Quarter: 2007Q1

REPORT INFORMATION
  Report Type: 
  Country: None (occurrence: None)
  Receive Date: 20061208
  Receipt Date: 20060516
  Transmission Date: 20070707
  Serious: Yes (Other)
  Sender: FDA-Public Use
  Company Number: 2006UW09559

PATIENT
  Age: 71 Year
  Sex: Female
  Weight: 79.378 kg

DRUGS (3)
  1. CRESTOR [Suspect]
     Indication: BLOOD CHOLESTEROL INCREASED
  2. HYDROCHLOROTHIAZIDE [Concomitant]
  3. THYROID TAB [Concomitant]

REACTIONS (1)
  - DEAFNESS NEUROSENSORY [None]
